FAERS Safety Report 12644902 (Version 1)
Quarter: 2016Q3

REPORT INFORMATION
  Report Type: Spontaneous
  Country: DE (occurrence: DE)
  Receive Date: 20160811
  Receipt Date: 20160811
  Transmission Date: 20161109
  Serious: Yes (Death)
  Sender: FDA-Public Use
  Company Number: DE-JNJFOC-20160805003

PATIENT
  Age: 75 Year
  Sex: Female

DRUGS (1)
  1. SIMPONI [Suspect]
     Active Substance: GOLIMUMAB
     Indication: RHEUMATIC DISORDER
     Route: 058
     Dates: start: 2010, end: 2014

REACTIONS (4)
  - Product use issue [Unknown]
  - Off label use [Unknown]
  - Cerebral disorder [Fatal]
  - Gastrointestinal disorder [Fatal]

NARRATIVE: CASE EVENT DATE: 2010
